FAERS Safety Report 21977179 (Version 1)
Quarter: 2023Q1

REPORT INFORMATION
  Report Type: Other
  Country: IN (occurrence: None)
  Receive Date: 20230210
  Receipt Date: 20230210
  Transmission Date: 20230417
  Serious: Yes (Other)
  Sender: FDA-Public Use
  Company Number: IN-ROCHE-3280551

PATIENT
  Age: 47 Year
  Sex: Male

DRUGS (15)
  1. RITUXIMAB [Suspect]
     Active Substance: RITUXIMAB
     Indication: Prophylaxis against transplant rejection
     Dosage: 3 WEEKS BEFORE TRANSPLANT
     Route: 042
  2. MYCOPHENOLATE MOFETIL [Suspect]
     Active Substance: MYCOPHENOLATE MOFETIL
     Indication: Prophylaxis against transplant rejection
     Dosage: 1 WEEK BEFORE TRANSPLANT
     Route: 065
  3. TACROLIMUS [Suspect]
     Active Substance: TACROLIMUS
     Indication: Prophylaxis against transplant rejection
     Route: 065
  4. ENTECAVIR [Concomitant]
     Active Substance: ENTECAVIR
  5. ZIDOVUDINE [Concomitant]
     Active Substance: ZIDOVUDINE
     Route: 048
  6. LAMIVUDINE [Concomitant]
     Active Substance: LAMIVUDINE
     Route: 048
  7. LAMIVUDINE [Concomitant]
     Active Substance: LAMIVUDINE
     Route: 048
  8. NEVIRAPINE [Concomitant]
     Active Substance: NEVIRAPINE
     Route: 048
  9. SOFOSBUVIR [Concomitant]
     Active Substance: SOFOSBUVIR
  10. VELPATASVIR [Concomitant]
     Active Substance: VELPATASVIR
     Route: 048
  11. ABACAVIR [Concomitant]
     Active Substance: ABACAVIR
     Route: 048
  12. DOLUTEGRAVIR [Concomitant]
     Active Substance: DOLUTEGRAVIR
     Route: 048
  13. COTRIMOXAZOLE [Concomitant]
     Active Substance: SULFAMETHOXAZOLE\TRIMETHOPRIM
  14. AZATHIOPRINE [Concomitant]
     Active Substance: AZATHIOPRINE
  15. PREDNISOLONE [Concomitant]
     Active Substance: PREDNISOLONE

REACTIONS (2)
  - Cytomegalovirus test positive [Unknown]
  - Gastroenteritis cryptosporidial [Unknown]
